FAERS Safety Report 10250933 (Version 1)
Quarter: 2014Q2

REPORT INFORMATION
  Report Type: Spontaneous
  Country: US (occurrence: US)
  Receive Date: 20140620
  Receipt Date: 20140620
  Transmission Date: 20141212
  Serious: No
  Sender: FDA-Public Use
  Company Number: US-ASTRAZENECA-2014SE45269

PATIENT
  Age: 79 Year
  Sex: Female

DRUGS (2)
  1. NEXIUM 24HR [Suspect]
     Indication: GASTROOESOPHAGEAL REFLUX DISEASE
     Dosage: DOSE AND FREQUENCY UNKNOWN
     Route: 048
     Dates: start: 2014
  2. NEXIUM [Concomitant]

REACTIONS (2)
  - Pollakiuria [Unknown]
  - Intentional product misuse [Unknown]
